FAERS Safety Report 20697076 (Version 2)
Quarter: 2023Q2

REPORT INFORMATION
  Report Type: Other
  Country: US (occurrence: None)
  Receive Date: 20220411
  Receipt Date: 20230627
  Transmission Date: 20230722
  Serious: Yes (Hospitalization)
  Sender: FDA-Public Use
  Company Number: US-ROCHE-3065569

PATIENT
  Age: 65 Year
  Sex: Male

DRUGS (1)
  1. OCREVUS [Suspect]
     Active Substance: OCRELIZUMAB
     Indication: Relapsing multiple sclerosis
     Dosage: DATE OF TREATMENT: 02/JUL/2018. 05/FEB/2019, 29/DEC/2021, 11/JAN/2023, 11/JUL/2022
     Route: 042
     Dates: start: 20170726

REACTIONS (3)
  - Multiple sclerosis relapse [Not Recovered/Not Resolved]
  - Pneumonia [Unknown]
  - COVID-19 [Unknown]
